FAERS Safety Report 6211959-4 (Version None)
Quarter: 2009Q2

REPORT INFORMATION
  Report Type: 
  Country: None (occurrence: None)
  Receive Date: 20090529
  Receipt Date: 20090518
  Transmission Date: 20091009
  Serious: Yes (Hospitalization)
  Sender: FDA-Public Use
  Company Number: SPV1-2009-00997

PATIENT
  Age: 31 Year
  Sex: Female
  Weight: 56.7 kg

DRUGS (3)
  1. PENTASA [Suspect]
     Indication: CROHN'S DISEASE
     Dosage: 4 G, 1X/2WKS, ORAL; 1.5 G, 1X/DAY:QD, ORAL
     Route: 048
     Dates: start: 19990101, end: 20081201
  2. PENTASA [Suspect]
     Indication: CROHN'S DISEASE
     Dosage: 4 G, 1X/2WKS, ORAL; 1.5 G, 1X/DAY:QD, ORAL
     Route: 048
     Dates: end: 20081201
  3. NAPRONAC (NAPROXEN) [Concomitant]

REACTIONS (11)
  - ABDOMINAL PAIN UPPER [None]
  - CONDITION AGGRAVATED [None]
  - CROHN'S DISEASE [None]
  - DEPRESSION [None]
  - GASTROINTESTINAL INFECTION [None]
  - INTESTINAL FISTULA [None]
  - NAUSEA [None]
  - OFF LABEL USE [None]
  - UNDERDOSE [None]
  - VOMITING [None]
  - WRONG DRUG ADMINISTERED [None]
